FAERS Safety Report 5151668-6 (Version None)
Quarter: 2006Q4

REPORT INFORMATION
  Report Type: 
  Country: None (occurrence: None)
  Receive Date: 20061109
  Receipt Date: 20061101
  Transmission Date: 20070319
  Serious: Yes (Hospitalization)
  Sender: FDA-Public Use
  Company Number: 1-4369601/MED 06206

PATIENT
  Sex: Female

DRUGS (6)
  1. BACTRIM [Suspect]
     Dosage: ORAL
     Route: 048
  2. TEMODAR [Suspect]
     Indication: GLIOBLASTOMA MULTIFORME
     Dates: start: 20060829, end: 20060925
  3. DEXAMETHASONE 4MG TAB [Concomitant]
  4. NEULASTA [Concomitant]
  5. DIFLUCAN [Concomitant]
  6. VALTREX [Concomitant]

REACTIONS (4)
  - HAEMORRHOIDS [None]
  - PLATELET COUNT DECREASED [None]
  - PROCTALGIA [None]
  - WHITE BLOOD CELL COUNT DECREASED [None]
